FAERS Safety Report 18950032 (Version 1)
Quarter: 2021Q1

REPORT INFORMATION
  Report Type: Spontaneous
  Country: BE (occurrence: BE)
  Receive Date: 20210227
  Receipt Date: 20210227
  Transmission Date: 20210420
  Serious: Yes (Disabling)
  Sender: FDA-Public Use
  Company Number: BE-BIOGEN-2021BI00983010

PATIENT
  Sex: Female
  Weight: 58 kg

DRUGS (1)
  1. TECFIDERA [Suspect]
     Active Substance: DIMETHYL FUMARATE
     Indication: RELAPSING-REMITTING MULTIPLE SCLEROSIS
     Dosage: GASTRO?RESISTANT HARD CAPSULES
     Route: 048
     Dates: start: 20150401, end: 20200601

REACTIONS (3)
  - Epstein-Barr virus infection reactivation [Recovered/Resolved]
  - Motor dysfunction [Recovered/Resolved]
  - Asthenia [Recovered/Resolved]

NARRATIVE: CASE EVENT DATE: 20190208
